FAERS Safety Report 7147573-6 (Version None)
Quarter: 2010Q4

REPORT INFORMATION
  Report Type: 
  Country: None (occurrence: None)
  Receive Date: 20101209
  Receipt Date: 20101201
  Transmission Date: 20110411
  Serious: Yes (Hospitalization)
  Sender: FDA-Public Use
  Company Number: US-BIOGENIDEC-2010BI028335

PATIENT
  Age: 49 Year
  Sex: Female

DRUGS (1)
  1. TYSABRI [Suspect]
     Indication: MULTIPLE SCLEROSIS
     Route: 042
     Dates: start: 20090708

REACTIONS (6)
  - CYSTITIS [None]
  - DIARRHOEA [None]
  - IMMUNE SYSTEM DISORDER [None]
  - SUBCUTANEOUS ABSCESS [None]
  - TENDONITIS [None]
  - URINARY TRACT INFECTION [None]
